FAERS Safety Report 24453817 (Version 2)
Quarter: 2024Q4

REPORT INFORMATION
  Report Type: Report from Study
  Country: CL (occurrence: CL)
  Receive Date: 20241017
  Receipt Date: 20241018
  Transmission Date: 20250115
  Serious: No
  Sender: ROCHE
  Company Number: CL-ROCHE-3436096

PATIENT
  Age: 24 Year
  Sex: Female

DRUGS (8)
  1. MABTHERA [Suspect]
     Active Substance: RITUXIMAB
     Indication: Optic neuritis
     Route: 041
     Dates: start: 202108, end: 202309
  2. MEDROL [Concomitant]
     Active Substance: METHYLPREDNISOLONE
     Dosage: 1/2 TABLET AT BREAKFAST
  3. EFFEXOR [Concomitant]
     Active Substance: VENLAFAXINE HYDROCHLORIDE
  4. CLOTIAZEPAM [Concomitant]
     Active Substance: CLOTIAZEPAM
  5. REXULTI [Concomitant]
     Active Substance: BREXPIPRAZOLE
     Dosage: 1 NIGHT
  6. CHLORPHENIRAMINE MALEATE [Concomitant]
     Active Substance: CHLORPHENIRAMINE MALEATE
     Dosage: 1 NIGHT FOR 1 MONTH (UNTIL 13-OCT-2023)
  7. ACYCLOVIR [Concomitant]
     Active Substance: ACYCLOVIR
  8. ZINC [Concomitant]
     Active Substance: ZINC
     Dosage: AT NIGHT FOR 2 MONTHS

REACTIONS (5)
  - Eye disorder [Unknown]
  - Tachycardia [Not Recovered/Not Resolved]
  - Rash [Recovered/Resolved]
  - Arthralgia [Recovered/Resolved]
  - Off label use [Unknown]

NARRATIVE: CASE EVENT DATE: 20230101
